FAERS Safety Report 5190529-3 (Version None)
Quarter: 2006Q4

REPORT INFORMATION
  Report Type: 
  Country: None (occurrence: None)
  Receive Date: 20061222
  Receipt Date: 20061214
  Transmission Date: 20070319
  Serious: Yes (Hospitalization)
  Sender: FDA-Public Use
  Company Number: NL-ROCHE-475172

PATIENT
  Age: 69 Year
  Sex: Female

DRUGS (7)
  1. CAPECITABINE [Suspect]
     Route: 048
     Dates: start: 20061031
  2. BEVACIZUMAB [Suspect]
     Route: 042
     Dates: start: 20061101
  3. OXALIPLATIN [Suspect]
     Route: 042
     Dates: start: 20061031
  4. CETUXIMAB [Suspect]
     Route: 042
     Dates: start: 20061031
  5. OMEPRAZOLE [Concomitant]
  6. PYRIDOXINE HCL [Concomitant]
  7. ACETAMINOPHEN [Concomitant]

REACTIONS (3)
  - NAUSEA [None]
  - STOMATITIS [None]
  - VOMITING [None]
